FAERS Safety Report 18981586 (Version 2)
Quarter: 2021Q1

REPORT INFORMATION
  Report Type: Spontaneous
  Country: BR (occurrence: BR)
  Receive Date: 20210308
  Receipt Date: 20210309
  Transmission Date: 20210420
  Serious: Yes (Life-Threatening, Hospitalization, Disabling, Other)
  Sender: FDA-Public Use
  Company Number: BR-ABBVIE-21P-020-3804937-00

PATIENT
  Sex: Female
  Weight: 75 kg

DRUGS (3)
  1. SYNTHROID [Suspect]
     Active Substance: LEVOTHYROXINE SODIUM
     Indication: THYROID DISORDER
     Dosage: INITIAL DOSE; ADMINISTERED IN FASTING AT 6AM
     Route: 048
  2. SYNTHROID [Suspect]
     Active Substance: LEVOTHYROXINE SODIUM
     Dosage: USED 27 TABLETS 100 MCG, 175 MCG
     Route: 048
  3. SYNTHROID [Suspect]
     Active Substance: LEVOTHYROXINE SODIUM
     Dosage: 100 MCG, 175 MCG
     Route: 048
     Dates: start: 2018

REACTIONS (18)
  - Dizziness [Not Recovered/Not Resolved]
  - Otitis externa [Unknown]
  - Gallbladder disorder [Unknown]
  - Limb injury [Unknown]
  - Insomnia [Recovered/Resolved]
  - Impaired driving ability [Unknown]
  - Feeling abnormal [Unknown]
  - Incorrect dose administered [Unknown]
  - Blood glucose increased [Not Recovered/Not Resolved]
  - Product dispensing error [Unknown]
  - Deafness [Unknown]
  - Hypertension [Not Recovered/Not Resolved]
  - Facial paralysis [Recovered/Resolved]
  - Cerebrovascular accident [Unknown]
  - Diabetes mellitus [Unknown]
  - Balance disorder [Not Recovered/Not Resolved]
  - Vomiting [Recovered/Resolved]
  - Balance disorder [Recovered/Resolved]

NARRATIVE: CASE EVENT DATE: 2003
